FAERS Safety Report 15685739 (Version 1)
Quarter: 2018Q4

REPORT INFORMATION
  Report Type: Spontaneous
  Country: US (occurrence: US)
  Receive Date: 20181121
  Receipt Date: 20181121
  Transmission Date: 20190205
  Serious: Yes (Hospitalization, Other)
  Sender: FDA-Public Use
  Company Number: None

PATIENT
  Age: 69 Year
  Sex: Male
  Weight: 68.04 kg

DRUGS (3)
  1. CLONAZEPAM. [Suspect]
     Active Substance: CLONAZEPAM
  2. LITHIUM. [Suspect]
     Active Substance: LITHIUM
     Dosage: ?          OTHER FREQUENCY:6 CAPS DAILY;?
  3. LATUDA [Suspect]
     Active Substance: LURASIDONE HYDROCHLORIDE
     Indication: PSYCHOMOTOR HYPERACTIVITY

REACTIONS (6)
  - Rhinorrhoea [None]
  - Dysgraphia [None]
  - Gait disturbance [None]
  - Tremor [None]
  - Dyskinesia [None]
  - Drooling [None]

NARRATIVE: CASE EVENT DATE: 20181015
